FAERS Safety Report 5216813-2 (Version None)
Quarter: 2007Q1

REPORT INFORMATION
  Report Type: 
  Country: None (occurrence: None)
  Receive Date: 20070119
  Receipt Date: 20061127
  Transmission Date: 20070707
  Serious: Yes (Hospitalization)
  Sender: FDA-Public Use
  Company Number: 0611-810

PATIENT
  Sex: Male
  Weight: 139.2543 kg

DRUGS (13)
  1. DUONEB [Suspect]
     Indication: CHRONIC OBSTRUCTIVE PULMONARY DISEASE
     Dosage: BID-INHALATION
     Route: 055
  2. ALBUTEROL SULFATE INH. SOLUTION [Concomitant]
  3. SPIRIVA [Concomitant]
  4. ADVAIR DISKUS 500/50 [Concomitant]
  5. OXYGEN THERAPY [Concomitant]
  6. POTASSIUM CHLORIDE [Concomitant]
  7. AMILORIDE HCL AND HYDROCHLOROTHIAZIDE [Concomitant]
  8. SPIRONOLACTONE [Concomitant]
  9. FURSEMIDE [Concomitant]
  10. VYTORIN [Concomitant]
  11. LANTUS [Concomitant]
  12. NOVOLOG [Concomitant]
  13. METFORMIN HCL [Concomitant]

REACTIONS (3)
  - HYPERGLYCAEMIA [None]
  - HYPERTENSION [None]
  - WRONG TECHNIQUE IN DRUG USAGE PROCESS [None]
